FAERS Safety Report 17455685 (Version 1)
Quarter: 2020Q1

REPORT INFORMATION
  Report Type: Spontaneous
  Country: US (occurrence: US)
  Receive Date: 20200212
  Receipt Date: 20200212
  Transmission Date: 20200409
  Serious: No
  Sender: FDA-Public Use
  Company Number: None

PATIENT
  Age: 7 Year
  Sex: Female

DRUGS (5)
  1. KEPPRA [Concomitant]
     Active Substance: LEVETIRACETAM
  2. VIGABATRIN  500MG [Suspect]
     Active Substance: VIGABATRIN
     Indication: MUSCLE SPASMS
     Route: 048
     Dates: start: 20191212
  3. PHENOBARBITAL. [Concomitant]
     Active Substance: PHENOBARBITAL
  4. AUGMENTIN [Concomitant]
     Active Substance: AMOXICILLIN\CLAVULANATE POTASSIUM
  5. CLOBAZAM. [Concomitant]
     Active Substance: CLOBAZAM

REACTIONS (2)
  - Product use issue [None]
  - Seizure [None]

NARRATIVE: CASE EVENT DATE: 20200211
